FAERS Safety Report 7611590-X (Version None)
Quarter: 2011Q3

REPORT INFORMATION
  Report Type: 
  Country: None (occurrence: None)
  Receive Date: 20110715
  Receipt Date: 20110609
  Transmission Date: 20111222
  Serious: Yes (Other)
  Sender: FDA-Public Use
  Company Number: ZA-GLAXOSMITHKLINE-B0726949A

PATIENT
  Sex: Female

DRUGS (4)
  1. LAMICTAL [Suspect]
     Indication: AFFECTIVE DISORDER
     Dosage: 100MG PER DAY
     Route: 065
     Dates: start: 20090316, end: 20110325
  2. SEROQUEL [Concomitant]
     Indication: AFFECTIVE DISORDER
     Dosage: 50MG PER DAY
     Dates: start: 20090316
  3. LILLY-FLUOXETINE [Concomitant]
     Indication: DEPRESSION
     Dosage: 20MG PER DAY
     Dates: start: 20090316
  4. POLYGAM S/D [Concomitant]

REACTIONS (7)
  - NIGHT SWEATS [None]
  - IMMUNODEFICIENCY COMMON VARIABLE [None]
  - ARTHRALGIA [None]
  - IMMUNODEFICIENCY [None]
  - NEUTROPENIA [None]
  - FATIGUE [None]
  - BLOOD IMMUNOGLOBULIN M DECREASED [None]
